FAERS Safety Report 17561561 (Version 1)
Quarter: 2020Q1

REPORT INFORMATION
  Report Type: Spontaneous
  Country: US (occurrence: US)
  Receive Date: 20200319
  Receipt Date: 20200319
  Transmission Date: 20200409
  Serious: No
  Sender: FDA-Public Use
  Company Number: US-PERRIGO-20US000930

PATIENT
  Age: 1 Year
  Sex: Male
  Weight: 11.34 kg

DRUGS (1)
  1. GUAIFENESIN-DEXTROMETHORPHAN HYDROBROMIDE [Suspect]
     Active Substance: DEXTROMETHORPHAN HYDROBROMIDE\GUAIFENESIN
     Indication: ACCIDENTAL EXPOSURE TO PRODUCT
     Dosage: 1 TO 2 TABLETS, SINGLE
     Route: 048
     Dates: start: 20200117, end: 20200117

REACTIONS (1)
  - Accidental exposure to product by child [Recovered/Resolved]

NARRATIVE: CASE EVENT DATE: 20200117
